FAERS Safety Report 8141091-4 (Version None)
Quarter: 2012Q1

REPORT INFORMATION
  Report Type: 
  Country: None (occurrence: None)
  Receive Date: 20120216
  Receipt Date: 20120202
  Transmission Date: 20120608
  Serious: Yes (Disabling)
  Sender: FDA-Public Use
  Company Number: JP-NAPPMUNDI-MAG-2011-0001971

PATIENT
  Sex: Female

DRUGS (4)
  1. OXYCODONE HCL [Suspect]
     Indication: BACK PAIN
     Dosage: 10 MG, Q12H
     Route: 048
     Dates: start: 20110601, end: 20110801
  2. DOCETAXEL [Concomitant]
  3. IBUPROFEN [Concomitant]
  4. PEMETREXED DISODIUM [Concomitant]

REACTIONS (2)
  - DEAFNESS BILATERAL [None]
  - TINNITUS [None]
